FAERS Safety Report 20435393 (Version 4)
Quarter: 2023Q1

REPORT INFORMATION
  Report Type: Report from Study
  Country: AR (occurrence: AR)
  Receive Date: 20220206
  Receipt Date: 20230301
  Transmission Date: 20230418
  Serious: Yes (Hospitalization)
  Sender: FDA-Public Use
  Company Number: AR-JNJFOC-20211054665

PATIENT
  Age: 54 Year
  Sex: Male
  Weight: 90.5 kg

DRUGS (7)
  1. GUSELKUMAB [Suspect]
     Active Substance: GUSELKUMAB
     Indication: Colitis ulcerative
     Dates: start: 20211004
  2. GUSELKUMAB [Suspect]
     Active Substance: GUSELKUMAB
  3. ACENOCOUMAROL [Concomitant]
     Active Substance: ACENOCOUMAROL
     Indication: Pulmonary embolism
     Route: 048
  4. ACENOCOUMAROL [Concomitant]
     Active Substance: ACENOCOUMAROL
     Indication: Embolism
     Route: 048
     Dates: start: 20180829
  5. INSULIN BEEF [Concomitant]
     Active Substance: INSULIN BEEF
     Indication: Type 2 diabetes mellitus
     Dosage: 16-12 IU
     Route: 058
     Dates: start: 2018
  6. INSULIN BEEF [Concomitant]
     Active Substance: INSULIN BEEF
  7. PREDNISONE [Concomitant]
     Active Substance: PREDNISONE
     Indication: Colitis ulcerative
     Route: 048
     Dates: start: 2020

REACTIONS (1)
  - Myocardial infarction [Recovered/Resolved]

NARRATIVE: CASE EVENT DATE: 20211023
